FAERS Safety Report 13931175 (Version 1)
Quarter: 2017Q3

REPORT INFORMATION
  Report Type: Spontaneous
  Country: GB (occurrence: GB)
  Receive Date: 20170902
  Receipt Date: 20170902
  Transmission Date: 20171127
  Serious: Yes (Death, Disabling, Congenital Anomaly, Other)
  Sender: FDA-Public Use
  Company Number: GB-ABBVIE-17P-167-2090940-00

PATIENT
  Sex: Male

DRUGS (1)
  1. EPILIM [Suspect]
     Active Substance: VALPROATE SODIUM
     Indication: MATERNAL EXPOSURE TIMING UNSPECIFIED
     Route: 064

REACTIONS (8)
  - Aphasia [Unknown]
  - Epilepsy [Fatal]
  - Seizure [Fatal]
  - Foetal anticonvulsant syndrome [Unknown]
  - Hydrocephalus [Unknown]
  - Urinary incontinence [Unknown]
  - Spina bifida [Unknown]
  - Gait inability [Unknown]
